FAERS Safety Report 9207844 (Version 2)
Quarter: 2013Q4

REPORT INFORMATION
  Report Type: Spontaneous
  Country: US (occurrence: US)
  Receive Date: 20130403
  Receipt Date: 20131111
  Transmission Date: 20140711
  Serious: Yes (Other)
  Sender: FDA-Public Use
  Company Number: US-BAYER-2013-040731

PATIENT
  Age: 29 Year
  Sex: Female

DRUGS (33)
  1. OCELLA [Suspect]
     Dosage: UNK
     Route: 048
     Dates: start: 2011, end: 201205
  2. XOPENEX [Concomitant]
     Dosage: 45 MCG, 1 TO 2 PUFFS EVERY 4 TO 6 HOURS AS NEEDED
     Route: 045
     Dates: start: 20110809
  3. ELMIRON [Concomitant]
     Dosage: 100 MG EVERY TWELVE HOURS PRN
     Route: 048
     Dates: start: 20111205, end: 20120304
  4. ELMIRON [Concomitant]
     Dosage: UNK
     Dates: start: 20120305
  5. ZYRTEC-D [Concomitant]
     Dosage: 5/120 MG, 1 TABLET EVERY 12 HOURS
     Route: 048
     Dates: start: 20111205, end: 20120304
  6. OMEPRAZOLE [Concomitant]
     Dosage: 20 MG, BID
     Route: 048
     Dates: start: 20111223
  7. OMEPRAZOLE [Concomitant]
     Dosage: UNK
     Dates: start: 20120119, end: 20120923
  8. ACETAMINOPHEN W/OXYCODONE [Concomitant]
     Dosage: 5/325 MG, ONE TABLET EVERY SIX HOURS AS NEEDED
     Route: 048
     Dates: start: 20120106, end: 20120207
  9. ACETAMINOPHEN W/OXYCODONE [Concomitant]
     Dosage: UNK
     Dates: start: 20120106, end: 20120806
  10. QVAR [Concomitant]
     Dosage: 40 MCG, 1 PUFF EVERY TWELVE HOURS
     Route: 045
     Dates: start: 20120107
  11. QVAR [Concomitant]
     Dosage: UNK
  12. DICYCLOMINE [Concomitant]
     Dosage: 10 MG EVERY 6 HOURS
     Route: 048
     Dates: start: 20120109, end: 20120408
  13. DICYCLOMINE [Concomitant]
     Dosage: UNK
     Dates: start: 20120109, end: 20120714
  14. ERYTHROMYCIN [Concomitant]
     Dosage: UNK %, UNK
     Dates: start: 20120216
  15. AMOXICILLIN [Concomitant]
     Dosage: 875 MG, UNK
     Dates: start: 20120216
  16. AMOXICILLIN [Concomitant]
     Dosage: UNK
     Dates: start: 20120325
  17. FLUCONAZOLE [Concomitant]
     Dosage: 150 MG, UNK
     Dates: start: 20120222, end: 20120322
  18. TRAZODONE [Concomitant]
     Dosage: 50 MG, UNK
     Dates: start: 20120216, end: 20120606
  19. NITROFURANTOIN [Concomitant]
     Dosage: 100 MG, EVERY TWELVE HOURS FOR 10 D THEN QD
     Route: 048
     Dates: start: 20120227, end: 20120427
  20. NITROFURANTOIN [Concomitant]
     Dosage: 100 MG, QD
  21. TRIAMCINOLONE [Concomitant]
     Dosage: 0.1 %, APPLY TO AFFECTED AREA ONCE TO TWICE DAILY
     Route: 061
     Dates: start: 20120229
  22. MINOCYCLINE [Concomitant]
     Dosage: 100 MG, BID
     Route: 048
     Dates: start: 20120229
  23. ANTIPYRINE AND BENZOCAIN OTIC SO. [BENZOCAINE,GLYCEROL,PHENAZONE] [Concomitant]
     Dosage: UNK
     Dates: start: 20120325
  24. FLUTICASONE [Concomitant]
     Dosage: 50 ?G, 2 SPRAYS IN EACH NOSTRIL DAILY
     Route: 045
     Dates: start: 20120326
  25. FLUTICASONE [Concomitant]
     Dosage: UNK
     Route: 045
     Dates: start: 20120722, end: 20120923
  26. FLUOCINONIDE [Concomitant]
     Dosage: 0.05 %,APPLY SPARINGLY TO SCALP TWICE DAILY
     Dates: start: 20120416
  27. LACTULOSE [Concomitant]
     Dosage: 10 GM/15 ML, 15 ML EVERY TWELVE HOURS
     Route: 048
     Dates: start: 20120416, end: 20120421
  28. POLYETHYLENE GLYCOL [Concomitant]
     Indication: CONSTIPATION
     Dosage: 17 GM IN 8 OUNCES OF LIQUID 1 TO 2 TIMES DAILY
     Route: 048
     Dates: start: 20120416
  29. OXYCODONE [Concomitant]
     Dosage: 5 MG, UNK
     Dates: start: 20120427
  30. ZOFRAN [Concomitant]
     Indication: NAUSEA
     Dosage: 4 MG EVERY 6 HOURS PRN
     Route: 048
     Dates: start: 20120430
  31. ZOFRAN [Concomitant]
     Indication: NAUSEA
     Dosage: UNK
     Dates: start: 20120427, end: 20120820
  32. AZITHROMYCIN [Concomitant]
     Dosage: UNK
     Dates: start: 20120322
  33. HYDROCODONE W/ACETAMINOPHEN [Concomitant]
     Dosage: UNK
     Dates: start: 20120325

REACTIONS (5)
  - Cholecystectomy [None]
  - Cholelithiasis [None]
  - Injury [None]
  - Pain [None]
  - Pain [None]
